FAERS Safety Report 15949910 (Version 1)
Quarter: 2019Q1

REPORT INFORMATION
  Report Type: Spontaneous
  Country: US (occurrence: US)
  Receive Date: 20190212
  Receipt Date: 20190212
  Transmission Date: 20190417
  Serious: No
  Sender: FDA-Public Use
  Company Number: US-009507513-1902USA001528

PATIENT
  Sex: Male
  Weight: 95.24 kg

DRUGS (1)
  1. TICE BCG [Suspect]
     Active Substance: BACILLUS CALMETTE-GUERIN SUBSTRAIN TICE LIVE ANTIGEN
     Indication: PROPHYLAXIS
     Dosage: 1 VIAL/QW FOR 6 WEEKS THEN 1 VIAL EVERY MONTH FOR 4 MONTHS
     Route: 043
     Dates: start: 20181009

REACTIONS (1)
  - Product dose omission [Unknown]
